FAERS Safety Report 10983867 (Version 1)
Quarter: 2015Q2

REPORT INFORMATION
  Report Type: Spontaneous
  Country: FR (occurrence: None)
  Receive Date: 20150401
  Receipt Date: 20150401
  Transmission Date: 20150821
  Serious: Yes (Hospitalization)
  Sender: FDA-Public Use
  Company Number: 2015FE00837

PATIENT
  Age: 85 Year
  Sex: Male

DRUGS (6)
  1. KARDEGIC [Concomitant]
     Active Substance: ASPIRIN LYSINE
  2. CALCIPARINE [Suspect]
     Active Substance: HEPARIN CALCIUM
     Indication: PRODUCT USED FOR UNKNOWN INDICATION
     Route: 058
     Dates: start: 20150117, end: 20150223
  3. FIRMAGON [Suspect]
     Active Substance: DEGARELIX ACETATE
     Indication: PRODUCT USED FOR UNKNOWN INDICATION
     Dosage: 240 MG, ONCE/SINGLE
     Dates: start: 20150121, end: 20150121
  4. EUPRESSYL (URAPIDIL) [Concomitant]
  5. HEPARINE CHOAY [Suspect]
     Active Substance: HEPARIN SODIUM
     Indication: PRODUCT USED FOR UNKNOWN INDICATION
     Dosage: 21000 IU, CONTINUOUSLY, INTRAVENOUS
     Route: 042
     Dates: start: 20150213, end: 20150214
  6. PERINDOPRIL [Concomitant]
     Active Substance: PERINDOPRIL

REACTIONS (8)
  - Pulmonary embolism [None]
  - Decreased appetite [None]
  - Heparin-induced thrombocytopenia [None]
  - Fall [None]
  - Hyperthermia [None]
  - Cor pulmonale [None]
  - General physical condition abnormal [None]
  - Deep vein thrombosis [None]

NARRATIVE: CASE EVENT DATE: 20150217
